FAERS Safety Report 5584657-8 (Version None)
Quarter: 2008Q1

REPORT INFORMATION
  Report Type: 
  Country: None (occurrence: None)
  Receive Date: 20080103
  Receipt Date: 20071218
  Transmission Date: 20080703
  Serious: Yes (Life-Threatening)
  Sender: FDA-Public Use
  Company Number: DSA_31047_2007

PATIENT
  Age: 71 Year
  Sex: Male

DRUGS (9)
  1. RENIVACE (RENIVACE - ENALAPRIL MALEATE) 5 MG [Suspect]
     Indication: HYPERTENSION
     Dosage: (5 MG QD ORAL)
     Route: 048
     Dates: start: 20060921, end: 20070125
  2. BAYASPIRIN (BAYASPIRIN - ACETYLSALICYLIC ACID) [Suspect]
     Indication: PROPHYLAXIS
     Dosage: (100 MG QD ORAL)
     Route: 048
     Dates: start: 20060921, end: 20070125
  3. WARFARIN SODIUM [Suspect]
     Indication: PROPHYLAXIS
     Dosage: (1 MG QD ORAL), (1.25 MG QD ORAL), (1.5 MG QD ORAL)
     Route: 048
     Dates: start: 20060921, end: 20061029
  4. WARFARIN SODIUM [Suspect]
     Indication: PROPHYLAXIS
     Dosage: (1 MG QD ORAL), (1.25 MG QD ORAL), (1.5 MG QD ORAL)
     Route: 048
     Dates: start: 20061030, end: 20061112
  5. WARFARIN SODIUM [Suspect]
     Indication: PROPHYLAXIS
     Dosage: (1 MG QD ORAL), (1.25 MG QD ORAL), (1.5 MG QD ORAL)
     Route: 048
     Dates: start: 20061113, end: 20070125
  6. DIGOXIN [Concomitant]
  7. MUCOSTA [Concomitant]
  8. MAGNESIUM OXIDE [Concomitant]
  9. GLYSENNID [Concomitant]

REACTIONS (6)
  - ALANINE AMINOTRANSFERASE INCREASED [None]
  - ASPARTATE AMINOTRANSFERASE INCREASED [None]
  - BLOOD BILIRUBIN INCREASED [None]
  - INTERNATIONAL NORMALISED RATIO INCREASED [None]
  - LIVER DISORDER [None]
  - PROTHROMBIN TIME PROLONGED [None]
